FAERS Safety Report 14067543 (Version 2)
Quarter: 2018Q3

REPORT INFORMATION
  Report Type: Spontaneous
  Country: US (occurrence: US)
  Receive Date: 20171009
  Receipt Date: 20180816
  Transmission Date: 20181010
  Serious: No
  Sender: FDA-Public Use
  Company Number: US-ACTELION-A-NJ2017-160542

PATIENT
  Age: 6 Month
  Sex: Male

DRUGS (2)
  1. TRACLEER [Suspect]
     Active Substance: BOSENTAN
     Dosage: 8.5 MG, BID
     Route: 048
     Dates: end: 20180604
  2. TRACLEER [Suspect]
     Active Substance: BOSENTAN
     Indication: PULMONARY ARTERIAL HYPERTENSION
     Dosage: 7.44 MG, BID
     Route: 048

REACTIONS (2)
  - No adverse event [Unknown]
  - Drug administered to patient of inappropriate age [Unknown]
